FAERS Safety Report 8373296-1 (Version None)
Quarter: 2012Q2

REPORT INFORMATION
  Report Type: 
  Country: None (occurrence: None)
  Receive Date: 20120521
  Receipt Date: 20110425
  Transmission Date: 20120825
  Serious: No
  Sender: FDA-Public Use
  Company Number: US-TEVA-2011002047

PATIENT
  Sex: Male
  Weight: 99.88 kg

DRUGS (2)
  1. RITUXIMAB [Concomitant]
     Indication: NON-HODGKIN'S LYMPHOMA
     Route: 042
     Dates: start: 20050101
  2. TREANDA [Suspect]
     Indication: NON-HODGKIN'S LYMPHOMA
     Route: 042
     Dates: start: 20101129, end: 20110127

REACTIONS (6)
  - DIARRHOEA [None]
  - RASH [None]
  - TRANSIENT ACANTHOLYTIC DERMATOSIS [None]
  - PYREXIA [None]
  - URTICARIA [None]
  - PRURITUS [None]
